FAERS Safety Report 15476975 (Version 1)
Quarter: 2018Q4

REPORT INFORMATION
  Report Type: Spontaneous
  Country: US (occurrence: US)
  Receive Date: 20181001
  Receipt Date: 20181001
  Transmission Date: 20190205
  Serious: Yes (Other)
  Sender: FDA-Public Use
  Company Number: None

PATIENT
  Age: 28 Year
  Sex: Female
  Weight: 127.01 kg

DRUGS (17)
  1. NEOSPORIN PAIN ITCH SCAR [Suspect]
     Active Substance: BACITRACIN ZINC\NEOMYCIN SULFATE\POLYMYXIN B SULFATE\PRAMOXINE HYDROCHLORIDE
     Indication: PRODUCT USED FOR UNKNOWN INDICATION
  2. JOHNSONS AND JOHNSONS BABY BEDTIME LOTION UNSPECIFIED CREAM [Suspect]
     Active Substance: COSMETICS
     Indication: PRODUCT USED FOR UNKNOWN INDICATION
  3. OGX HYDRATE PLUS DEFRIZZ OIL UNSPECIFIED [Suspect]
     Active Substance: COSMETICS
     Indication: PRODUCT USED FOR UNKNOWN INDICATION
  4. AVEENO BABY DAILY MOISTURE [Suspect]
     Active Substance: DIMETHICONE
     Indication: PRODUCT USED FOR UNKNOWN INDICATION
  5. NEUTROGENA NORWEGIAN FORMULA HAND CREAM [Suspect]
     Active Substance: COSMETICS
     Indication: PRODUCT USED FOR UNKNOWN INDICATION
  6. JOHNSONS AND JOHNSONS BABY BUBBLE BATH/ + WASH UNSPECIFIED [Suspect]
     Active Substance: COSMETICS
     Indication: PRODUCT USED FOR UNKNOWN INDICATION
  7. JOHNSONS BABY POWDER (TALC) [Suspect]
     Active Substance: TALC
     Indication: PRODUCT USED FOR UNKNOWN INDICATION
  8. AVEENO POSITIVELY RADIANT BODY LOTION 12OZ CREAM [Suspect]
     Active Substance: COSMETICS
     Indication: PRODUCT USED FOR UNKNOWN INDICATION
  9. NEUTROGENA HYDRO BOOST WATER GEL 1.7OZ CREAM [Suspect]
     Active Substance: COSMETICS
     Indication: PRODUCT USED FOR UNKNOWN INDICATION
  10. NEUTROGENA NORWEGIAN HAND FORMULA CREAM FRAGRANCE FREE (DERMATOLOGICAL [Suspect]
     Active Substance: COSMETICS
     Indication: PRODUCT USED FOR UNKNOWN INDICATION
  11. NEUTROGENA NORWEGIAN FORMULA LIP MOISTURIZER SPF15 [Suspect]
     Active Substance: OCTINOXATE\OXYBENZONE
     Indication: PRODUCT USED FOR UNKNOWN INDICATION
  12. MAUI MOISTURE CURL QUENCH COCONUT OIL CURL SMOOTHIE [Suspect]
     Active Substance: COSMETICS
     Indication: PRODUCT USED FOR UNKNOWN INDICATION
  13. AVEENO ULTRA CALMING MOIST LOTION 1.7OZ (AVEENO ULTRA-CALMING) CREAM [Suspect]
     Active Substance: COSMETICS
     Indication: PRODUCT USED FOR UNKNOWN INDICATION
  14. MAUI MOISTURE CURL QUENCH COCONUT OIL SHAMPOO 19.5OZ SHAMPOO [Suspect]
     Active Substance: COSMETICS
     Indication: PRODUCT USED FOR UNKNOWN INDICATION
  15. LUBRIDERM FOR MEN 3-IN-1 LIGHT FRAGRANCE (DERMATOLOGICAL PRODUCTS) LOTION [Concomitant]
  16. MAUI MOISTURE CURL QUENCH COCONUT OIL CONDITIONER 19.5OZ SHAMPOO [Suspect]
     Active Substance: COSMETICS
     Indication: PRODUCT USED FOR UNKNOWN INDICATION
  17. NEUTROGENA MAKEUP REMOVER CLEANSING TOWEL 25S REFF UNSPECIFIED [Suspect]
     Active Substance: COSMETICS
     Indication: PRODUCT USED FOR UNKNOWN INDICATION

REACTIONS (3)
  - Abortion spontaneous [None]
  - Exposure during pregnancy [None]
  - Ectopic pregnancy [None]
